FAERS Safety Report 8934033 (Version 1)
Quarter: 2012Q4

REPORT INFORMATION
  Report Type: 
  Country: FR (occurrence: FR)
  Receive Date: 20121129
  Receipt Date: 20121129
  Transmission Date: 20130627
  Serious: Yes (Other)
  Sender: FDA-Public Use
  Company Number: FR-ASTRAZENECA-2012SE88674

PATIENT
  Age: 8714 Day
  Sex: Female

DRUGS (1)
  1. XYLOCAINE VISCOUS [Suspect]
     Indication: LOCAL ANAESTHESIA
     Route: 061
     Dates: start: 20110704, end: 20110704

REACTIONS (1)
  - Angioedema [Recovered/Resolved]
